FAERS Safety Report 15980678 (Version 2)
Quarter: 2019Q1

REPORT INFORMATION
  Report Type: Other
  Country: NL (occurrence: NL)
  Receive Date: 20190219
  Receipt Date: 20190326
  Transmission Date: 20190418
  Serious: Yes (Death, Life-Threatening, Hospitalization, Other)
  Sender: FDA-Public Use
  Company Number: NL-ASPEN-GLO2019NL001245

PATIENT
  Age: 72 Year
  Sex: Female
  Weight: 74 kg

DRUGS (4)
  1. DEXAMETHASONE. [Suspect]
     Active Substance: DEXAMETHASONE
     Indication: AMYLOIDOSIS
     Dosage: 10 MG
     Route: 048
  2. DARATUMUMAB [Suspect]
     Active Substance: DARATUMUMAB
     Indication: AMYLOIDOSIS
     Dosage: 1800 MG, 2 DOSE WEEKLY
     Route: 058
     Dates: start: 20181128
  3. BORTEZOMIB. [Suspect]
     Active Substance: BORTEZOMIB
     Indication: AMYLOIDOSIS
     Dosage: DOSAGE FORM: LYOPHILIZED POWDER
     Route: 058
  4. CYCLOPHOSPHAMIDE. [Suspect]
     Active Substance: CYCLOPHOSPHAMIDE
     Indication: AMYLOIDOSIS
     Route: 048

REACTIONS (7)
  - Pulmonary sepsis [Recovered/Resolved]
  - Off label use [Unknown]
  - Staphylococcal sepsis [Not Recovered/Not Resolved]
  - Candida sepsis [Recovered/Resolved]
  - Hypotension [Unknown]
  - Product use in unapproved indication [Unknown]
  - Cardiac failure [Fatal]

NARRATIVE: CASE EVENT DATE: 20181128
